FAERS Safety Report 8093018-1 (Version None)
Quarter: 2012Q1

REPORT INFORMATION
  Report Type: 
  Country: None (occurrence: None)
  Receive Date: 20120128
  Receipt Date: 20110926
  Transmission Date: 20120608
  Serious: Yes (Other)
  Sender: FDA-Public Use
  Company Number: US-ABBOTT-10P-163-0648917-00

PATIENT
  Sex: Female

DRUGS (6)
  1. TRIAMTERENE [Concomitant]
     Indication: HYPERTENSION
     Dosage: DAILY
  2. UNKNOWN BLOOD PRESSURE PILL [Concomitant]
     Indication: PRODUCT USED FOR UNKNOWN INDICATION
  3. HUMIRA [Suspect]
     Indication: RHEUMATOID ARTHRITIS
     Route: 058
     Dates: start: 20080101, end: 20110801
  4. TRAMADOL HCL [Suspect]
     Indication: ARTHRALGIA
     Dates: start: 20100501
  5. VERAPAMIL [Concomitant]
     Indication: HYPERTENSION
  6. LEVOTHYROXINE SODIUM [Concomitant]
     Indication: PRODUCT USED FOR UNKNOWN INDICATION

REACTIONS (9)
  - RASH MACULAR [None]
  - STRESS [None]
  - MALIGNANT MELANOMA [None]
  - ABNORMAL DREAMS [None]
  - MELANOCYTIC NAEVUS [None]
  - ALOPECIA [None]
  - ARTHRALGIA [None]
  - SKIN DISCOLOURATION [None]
  - WEIGHT DECREASED [None]
